FAERS Safety Report 6974399 (Version 6)
Quarter: 2015Q1

REPORT INFORMATION
  Report Type: Spontaneous
  Country: US (occurrence: US)
  Receive Date: 20090421
  Receipt Date: 20150204
  Transmission Date: 20150721
  Serious: Yes (Hospitalization, Other)
  Sender: FDA-Public Use
  Company Number: US-ASTRAZENECA-1998AU05033

PATIENT
  Age: 24084 Day
  Sex: Female
  Weight: 52.2 kg

DRUGS (18)
  1. LIPITOR [Concomitant]
     Active Substance: ATORVASTATIN CALCIUM
     Indication: BLOOD CHOLESTEROL INCREASED
     Route: 065
  2. IRON [Concomitant]
     Active Substance: IRON
  3. TOPROL XL [Suspect]
     Active Substance: METOPROLOL SUCCINATE
     Indication: HYPERTENSION
     Route: 048
  4. CRESTOR [Suspect]
     Active Substance: ROSUVASTATIN CALCIUM
     Dosage: ONE TABLET THREE TO FOUR TIMES WEEKLY
     Route: 048
  5. FOLIC ACID. [Concomitant]
     Active Substance: FOLIC ACID
  6. TOPROL XL [Suspect]
     Active Substance: METOPROLOL SUCCINATE
     Indication: HYPERTENSION
     Route: 048
     Dates: start: 19980515
  7. RADIATION [Suspect]
     Active Substance: RADIATION THERAPY
     Route: 065
     Dates: start: 2010
  8. ACCUPRIL [Concomitant]
     Active Substance: QUINAPRIL HYDROCHLORIDE
     Indication: HYPERTENSION
     Route: 065
  9. BABY ASA [Concomitant]
     Active Substance: ASPIRIN
  10. VITAMIN C [Concomitant]
     Active Substance: ASCORBIC ACID
  11. ZOCOR [Concomitant]
     Active Substance: SIMVASTATIN
  12. CRESTOR [Suspect]
     Active Substance: ROSUVASTATIN CALCIUM
     Route: 048
     Dates: start: 20120719
  13. VITAMIN D [Concomitant]
     Active Substance: CHOLECALCIFEROL
  14. VITAMIN B12 [Concomitant]
     Active Substance: CYANOCOBALAMIN
  15. TOPROL XL [Suspect]
     Active Substance: METOPROLOL SUCCINATE
     Indication: HYPERTENSION
     Dosage: GENERIC
     Route: 042
     Dates: start: 201305
  16. TOPROL XL [Suspect]
     Active Substance: METOPROLOL SUCCINATE
     Indication: HYPERTENSION
     Dosage: GENERIC, DOSE WAS INCREASED
     Route: 042
  17. TRIAVIL [Concomitant]
     Active Substance: AMITRIPTYLINE HYDROCHLORIDE\PERPHENAZINE
  18. VITAMIN B6 [Concomitant]
     Active Substance: PYRIDOXINE HYDROCHLORIDE

REACTIONS (19)
  - Weight increased [Not Recovered/Not Resolved]
  - Drug ineffective [Unknown]
  - Oesophageal pain [None]
  - Abdominal adhesions [Unknown]
  - Pain [Unknown]
  - Weight decreased [Unknown]
  - Ear discomfort [Unknown]
  - Blood pressure abnormal [Unknown]
  - Blood homocysteine abnormal [Unknown]
  - Insomnia [None]
  - Ageusia [Recovered/Resolved]
  - Dysphonia [Unknown]
  - Adverse reaction [Unknown]
  - Alopecia [Not Recovered/Not Resolved]
  - Therapeutic response decreased [Unknown]
  - Uterine cancer [Unknown]
  - Eating disorder [Unknown]
  - Dysgeusia [Unknown]
  - Tinnitus [Unknown]

NARRATIVE: CASE EVENT DATE: 19980623
